FAERS Safety Report 7358687-X (Version None)
Quarter: 2011Q1

REPORT INFORMATION
  Report Type: 
  Country: None (occurrence: None)
  Receive Date: 20110317
  Receipt Date: 20110311
  Transmission Date: 20110831
  Serious: Yes (Hospitalization, Other)
  Sender: FDA-Public Use
  Company Number: US-PFIZER INC-2006061391

PATIENT
  Sex: Male

DRUGS (2)
  1. NEURONTIN [Suspect]
     Dosage: 900 MG, 2X/DAY
     Dates: start: 20030916
  2. NEURONTIN [Suspect]
     Dosage: UNK
     Route: 065
     Dates: start: 20010901

REACTIONS (1)
  - SUICIDE ATTEMPT [None]
